FAERS Safety Report 18559918 (Version 1)
Quarter: 2020Q4

REPORT INFORMATION
  Report Type: Spontaneous
  Country: US (occurrence: US)
  Receive Date: 20201130
  Receipt Date: 20201130
  Transmission Date: 20210114
  Serious: Yes (Hospitalization, Other)
  Sender: FDA-Public Use
  Company Number: US-009507513-2011USA016078

PATIENT
  Age: 51 Year
  Sex: Male
  Weight: 109.3 kg

DRUGS (12)
  1. NORVASC [Concomitant]
     Active Substance: AMLODIPINE BESYLATE
     Indication: BLOOD PRESSURE ABNORMAL
     Dosage: 20 MILLIGRAM, QD
     Route: 048
     Dates: start: 201210
  2. CRESTOR [Suspect]
     Active Substance: ROSUVASTATIN CALCIUM
     Indication: BLOOD CHOLESTEROL INCREASED
     Dosage: 20 MILLIGRAM, QD
     Route: 048
     Dates: start: 201101, end: 201307
  3. PLAVIX [Concomitant]
     Active Substance: CLOPIDOGREL BISULFATE
     Indication: ANTIPLATELET THERAPY
     Dosage: 75 MILLIGRAM, QD
     Route: 048
     Dates: start: 201101
  4. NEXIUM [Suspect]
     Active Substance: ESOMEPRAZOLE MAGNESIUM
     Indication: HIATUS HERNIA
     Dosage: FREQUENCY: DAILY
     Route: 048
  5. BAYER ASPIRIN [Concomitant]
     Active Substance: ASPIRIN
     Dosage: 325 MILLIGRAM, QD
     Route: 048
     Dates: start: 201101
  6. PREVACID [Concomitant]
     Active Substance: LANSOPRAZOLE
     Indication: HIATUS HERNIA
     Dosage: 30 MILLIGRAM, QD
     Route: 048
     Dates: start: 2009
  7. PRILOSEC [Interacting]
     Active Substance: OMEPRAZOLE MAGNESIUM
     Indication: HIATUS HERNIA
     Dosage: FREQUENCY: DAILY
     Route: 048
  8. FLOVENT [Concomitant]
     Active Substance: FLUTICASONE PROPIONATE
     Indication: CHRONIC OBSTRUCTIVE PULMONARY DISEASE
     Dosage: 250 (UNIT NOT REPORTED), BID
     Route: 055
  9. CRESTOR [Suspect]
     Active Substance: ROSUVASTATIN CALCIUM
     Indication: BLOOD CHOLESTEROL INCREASED
     Dosage: 10 MILLIGRAM, QD
     Route: 048
     Dates: end: 201101
  10. OXYCODONE HYDROCHLORIDE. [Concomitant]
     Active Substance: OXYCODONE HYDROCHLORIDE
     Indication: BACK PAIN
     Dosage: 10 MILLIGRAM, QD
     Route: 048
     Dates: start: 201307
  11. PRINIVIL [Suspect]
     Active Substance: LISINOPRIL
     Indication: HYPERTENSION
     Dosage: 20 MILLIGRAM, QD
     Route: 048
     Dates: start: 201101
  12. ALBUTEROL. [Concomitant]
     Active Substance: ALBUTEROL
     Indication: CHRONIC OBSTRUCTIVE PULMONARY DISEASE
     Dosage: 0.3 (UNIT NOT RERPOTED), UNKNOWN
     Route: 055

REACTIONS (18)
  - Product use in unapproved indication [Unknown]
  - Condition aggravated [Recovering/Resolving]
  - Drug ineffective [Unknown]
  - Pneumonia viral [Unknown]
  - Product dispensing error [Unknown]
  - Back injury [Not Recovered/Not Resolved]
  - Nerve injury [Unknown]
  - Hypertension [Unknown]
  - Aggression [Unknown]
  - Product dose omission issue [Not Recovered/Not Resolved]
  - Drug interaction [Unknown]
  - Myocardial infarction [Recovered/Resolved]
  - Volvulus [Recovered/Resolved with Sequelae]
  - Gastric disorder [Unknown]
  - Adverse drug reaction [Unknown]
  - Blister [Not Recovered/Not Resolved]
  - Fatigue [Unknown]
  - Chronic obstructive pulmonary disease [Unknown]

NARRATIVE: CASE EVENT DATE: 2006
